FAERS Safety Report 11214406 (Version 2)
Quarter: 2015Q2

REPORT INFORMATION
  Report Type: Spontaneous
  Country: FR (occurrence: FR)
  Receive Date: 20150624
  Receipt Date: 20150629
  Transmission Date: 20150821
  Serious: Yes (Other)
  Sender: FDA-Public Use
  Company Number: FR-ASTRAZENECA-2015SE60203

PATIENT
  Age: 34020 Day
  Sex: Female

DRUGS (8)
  1. MOPRAL [Suspect]
     Active Substance: OMEPRAZOLE SODIUM
     Indication: GASTROOESOPHAGEAL REFLUX DISEASE
     Route: 048
  2. MOPRAL [Suspect]
     Active Substance: OMEPRAZOLE SODIUM
     Indication: GASTROOESOPHAGEAL REFLUX DISEASE
     Route: 048
     Dates: start: 201506
  3. CARDENSIEL [Concomitant]
     Active Substance: BISOPROLOL FUMARATE
     Dates: start: 201506
  4. LEVOTHYROX [Concomitant]
     Active Substance: LEVOTHYROXINE
     Indication: HYPOTHYROIDISM
     Dates: start: 201506
  5. LASILIX [Concomitant]
     Active Substance: FUROSEMIDE
     Dates: start: 201506
  6. TRIATEC [Concomitant]
     Active Substance: RAMIPRIL
     Dates: start: 201506
  7. CORDARONE [Concomitant]
     Active Substance: AMIODARONE HYDROCHLORIDE
     Indication: ATRIAL FIBRILLATION
     Dates: start: 201506
  8. ELIQUIS [Concomitant]
     Active Substance: APIXABAN
     Dates: start: 201506

REACTIONS (5)
  - Secretion discharge [Unknown]
  - Bronchitis [Unknown]
  - Choking [Unknown]
  - Cough [Not Recovered/Not Resolved]
  - Pyrexia [Unknown]

NARRATIVE: CASE EVENT DATE: 20150613
